FAERS Safety Report 6043710-5 (Version None)
Quarter: 2009Q1

REPORT INFORMATION
  Report Type: 
  Country: None (occurrence: None)
  Receive Date: 20090120
  Receipt Date: 20090108
  Transmission Date: 20090719
  Serious: Yes (Other)
  Sender: FDA-Public Use
  Company Number: PHEH2009US00780

PATIENT
  Age: 58 Year
  Sex: Male
  Weight: 136.5 kg

DRUGS (10)
  1. LAMISIL [Suspect]
     Indication: ONYCHOMYCOSIS
     Dosage: 250 MG, QD
     Route: 048
     Dates: start: 20081230, end: 20090107
  2. TOPROL-XL [Concomitant]
  3. ISRADIPINE [Concomitant]
  4. ZOCOR [Concomitant]
  5. SIMVASTATIN [Concomitant]
  6. HYDROCHLOROTHIAZIDE [Concomitant]
  7. POTASSIUM SUPPLEMENTS [Concomitant]
  8. ASPIRIN [Concomitant]
  9. COUMADIN [Concomitant]
  10. NAFTIN TOP [Concomitant]

REACTIONS (3)
  - DYSPNOEA [None]
  - FEELING ABNORMAL [None]
  - LETHARGY [None]
